FAERS Safety Report 7261002-3 (Version None)
Quarter: 2011Q1

REPORT INFORMATION
  Report Type: 
  Country: None (occurrence: None)
  Receive Date: 20110130
  Receipt Date: 20101109
  Transmission Date: 20110831
  Serious: No
  Sender: FDA-Public Use
  Company Number: US-ABBOTT-10P-163-0685232-00

PATIENT
  Sex: Female
  Weight: 78.088 kg

DRUGS (6)
  1. HUMIRA [Suspect]
     Route: 058
     Dates: start: 20100801
  2. HUMIRA [Suspect]
     Indication: SYSTEMIC LUPUS ERYTHEMATOSUS
     Route: 058
     Dates: start: 20020101, end: 20050101
  3. CALCIUM WITH D [Concomitant]
     Indication: PRODUCT USED FOR UNKNOWN INDICATION
  4. MULTI-VITAMIN [Concomitant]
     Indication: PRODUCT USED FOR UNKNOWN INDICATION
  5. GLYBURIDE [Concomitant]
     Indication: PRODUCT USED FOR UNKNOWN INDICATION
  6. METFORMIN [Concomitant]
     Indication: DIABETES MELLITUS

REACTIONS (6)
  - INFLUENZA [None]
  - JOINT STIFFNESS [None]
  - SINUSITIS [None]
  - ARTHRALGIA [None]
  - OEDEMA PERIPHERAL [None]
  - PAIN IN EXTREMITY [None]
